FAERS Safety Report 5679388-X (Version None)
Quarter: 2008Q1

REPORT INFORMATION
  Report Type: 
  Country: None (occurrence: None)
  Receive Date: 20080325
  Receipt Date: 20080317
  Transmission Date: 20080703
  Serious: Yes (Hospitalization, Other)
  Sender: FDA-Public Use
  Company Number: US-ELI_LILLY_AND_COMPANY-US200802006676

PATIENT
  Sex: Female
  Weight: 90.703 kg

DRUGS (16)
  1. BYETTA [Suspect]
     Indication: TYPE 2 DIABETES MELLITUS
     Dosage: 5 UG, 2/D
     Route: 058
     Dates: start: 20050609, end: 20050701
  2. BYETTA [Suspect]
     Dosage: 10 UG, 2/D
     Route: 058
     Dates: start: 20050701, end: 20060301
  3. BYETTA [Suspect]
     Dosage: 5 UG, DAILY (1/D)
     Route: 058
     Dates: start: 20060301, end: 20060301
  4. BYETTA [Suspect]
     Dosage: 5 UG, 2/D
     Dates: start: 20060608, end: 20060101
  5. BYETTA [Suspect]
     Dosage: 10 UG, 2/D
     Dates: start: 20070709, end: 20070901
  6. GLYBURIDE [Concomitant]
     Indication: TYPE 2 DIABETES MELLITUS
     Dosage: UNK, UNKNOWN
     Dates: start: 20020101, end: 20060301
  7. METFORMIN [Concomitant]
     Indication: TYPE 2 DIABETES MELLITUS
     Dosage: 500 MG, DAILY (1/D)
     Dates: start: 20060301
  8. METFORMIN [Concomitant]
     Dosage: 850 MG, 2/D
  9. ACIPHEX [Concomitant]
     Indication: GASTROOESOPHAGEAL REFLUX DISEASE
     Dosage: UNK, UNKNOWN
  10. PREVACID [Concomitant]
     Indication: GASTROOESOPHAGEAL REFLUX DISEASE
     Dosage: 30 MG, DAILY (1/D)
  11. LISINOPRIL HYDROCHLORTHIAZID [Concomitant]
     Indication: BLOOD PRESSURE
     Dosage: 20 MG, DAILY (1/D)
     Dates: start: 20050609
  12. TEMAZEPAM [Concomitant]
     Indication: SLEEP DISORDER
     Dosage: 30 MG, AS NEEDED
     Dates: start: 20070201
  13. HYDROXYCHLOROQUINE [Concomitant]
     Indication: SARCOIDOSIS
     Dosage: 200 MG, DAILY (1/D)
  14. ACTOS [Concomitant]
     Indication: TYPE 2 DIABETES MELLITUS
     Dosage: UNK, UNKNOWN
     Dates: start: 20050101, end: 20060301
  15. ACTOS [Concomitant]
     Dosage: 15 MG, UNK
  16. INSULIN [Concomitant]
     Indication: TYPE 2 DIABETES MELLITUS
     Dosage: UNK, UNKNOWN
     Dates: start: 20060301, end: 20060301

REACTIONS (9)
  - ABDOMINAL PAIN [None]
  - ASTHENIA [None]
  - BLOOD GLUCOSE DECREASED [None]
  - GASTROOESOPHAGEAL REFLUX DISEASE [None]
  - NAUSEA [None]
  - RENAL CELL CARCINOMA [None]
  - TREMOR [None]
  - VOMITING [None]
  - WEIGHT INCREASED [None]
